FAERS Safety Report 10675261 (Version 1)
Quarter: 2014Q4

REPORT INFORMATION
  Report Type: Spontaneous
  Country: BE (occurrence: BE)
  Receive Date: 20141224
  Receipt Date: 20141224
  Transmission Date: 20150529
  Serious: Yes (Hospitalization, Other)
  Sender: FDA-Public Use
  Company Number: PHHY2014BE162533

PATIENT
  Age: 41 Year
  Sex: Male

DRUGS (11)
  1. LAMOTRIGINE. [Suspect]
     Active Substance: LAMOTRIGINE
     Indication: COMPLEX PARTIAL SEIZURES
     Dosage: 400 MG, QD
     Route: 065
  2. TIAGABINE [Suspect]
     Active Substance: TIAGABINE
     Indication: COMPLEX PARTIAL SEIZURES
     Dosage: UNK
     Route: 065
  3. GABAPENTIN. [Suspect]
     Active Substance: GABAPENTIN
     Dosage: 900 MG, QD
     Route: 065
  4. CARBAMAZEPINE. [Suspect]
     Active Substance: CARBAMAZEPINE
     Dosage: 800 MG, QD
     Route: 065
  5. GABAPENTIN. [Suspect]
     Active Substance: GABAPENTIN
     Dosage: 600 MG, QD
     Route: 065
  6. CARBAMAZEPINE. [Suspect]
     Active Substance: CARBAMAZEPINE
     Indication: COMPLEX PARTIAL SEIZURES
     Dosage: 1200 MG, QD
     Route: 065
  7. GABAPENTIN. [Suspect]
     Active Substance: GABAPENTIN
     Indication: COMPLEX PARTIAL SEIZURES
     Route: 065
  8. CARBAMAZEPINE. [Suspect]
     Active Substance: CARBAMAZEPINE
     Dosage: 500 MG, QD
     Route: 065
  9. TIAGABINE [Suspect]
     Active Substance: TIAGABINE
     Dosage: 60 MG, QD
     Route: 065
  10. TIAGABINE [Suspect]
     Active Substance: TIAGABINE
     Dosage: 60 MG, QD
     Route: 065
  11. TIAGABINE [Suspect]
     Active Substance: TIAGABINE
     Dosage: 20 MG, QD
     Route: 065

REACTIONS (12)
  - Confusional state [Recovered/Resolved]
  - Amnesia [Recovered/Resolved]
  - Status epilepticus [Unknown]
  - Muscle twitching [Recovered/Resolved]
  - Consciousness fluctuating [Recovered/Resolved]
  - Complex partial seizures [Unknown]
  - Somnolence [Recovered/Resolved]
  - Staring [Recovered/Resolved]
  - Toxicity to various agents [Unknown]
  - Lethargy [Recovered/Resolved]
  - Disturbance in attention [Recovered/Resolved]
  - Unresponsive to stimuli [Recovered/Resolved]
